FAERS Safety Report 4428331-X (Version None)
Quarter: 2004Q3

REPORT INFORMATION
  Report Type: 
  Country: None (occurrence: None)
  Receive Date: 20040818
  Receipt Date: 20040806
  Transmission Date: 20050211
  Serious: Yes (Other)
  Sender: FDA-Public Use
  Company Number: US-JNJFOC-20040802797

PATIENT
  Sex: Female

DRUGS (11)
  1. INFLIXIMAB [Suspect]
     Indication: RHEUMATOID ARTHRITIS
     Route: 042
  2. METHOTREXATE [Concomitant]
  3. TOPROL-XL [Concomitant]
  4. PREMPRO [Concomitant]
  5. PREMPRO [Concomitant]
  6. CELEBREX [Concomitant]
  7. FOLIC ACID [Concomitant]
  8. PREVACID [Concomitant]
  9. FOSAMAX [Concomitant]
  10. PRED FORTE EYE DROPS [Concomitant]
  11. DOVONEX [Concomitant]

REACTIONS (1)
  - BASAL CELL CARCINOMA [None]
